FAERS Safety Report 5875028-5 (Version None)
Quarter: 2008Q3

REPORT INFORMATION
  Report Type: 
  Country: None (occurrence: None)
  Receive Date: 20080908
  Receipt Date: 20080908
  Transmission Date: 20090109
  Serious: No
  Sender: FDA-Public Use
  Company Number: None

PATIENT
  Age: 72 Year
  Sex: Female
  Weight: 81.6475 kg

DRUGS (1)
  1. METOPROLOL TARTRATE [Suspect]
     Dosage: 25 MG TWICE PER DAY
     Dates: start: 20080530, end: 20080616

REACTIONS (1)
  - ALOPECIA [None]
